FAERS Safety Report 18273958 (Version 1)
Quarter: 2020Q3

REPORT INFORMATION
  Report Type: Spontaneous
  Country: RU (occurrence: RU)
  Receive Date: 20200916
  Receipt Date: 20200916
  Transmission Date: 20201103
  Serious: Yes (Hospitalization, Other)
  Sender: FDA-Public Use
  Company Number: RU-BAYER-2020-189769

PATIENT
  Age: 59 Year
  Sex: Female

DRUGS (1)
  1. ANGELIQ [Suspect]
     Active Substance: DROSPIRENONE\ESTRADIOL
     Indication: MENOPAUSAL SYMPTOMS
     Dosage: UNK
     Route: 048
     Dates: end: 202004

REACTIONS (4)
  - Postmenopausal haemorrhage [None]
  - Metaplasia [None]
  - Cervical polyp [None]
  - Uterine polyp [None]

NARRATIVE: CASE EVENT DATE: 202004
